FAERS Safety Report 17864627 (Version 1)
Quarter: 2020Q2

REPORT INFORMATION
  Report Type: Spontaneous
  Country: US (occurrence: US)
  Receive Date: 20200604
  Receipt Date: 20200604
  Transmission Date: 20200714
  Serious: Yes (Death)
  Sender: FDA-Public Use
  Company Number: None

PATIENT
  Age: 62 Year
  Sex: Female

DRUGS (1)
  1. PIQRAY [Suspect]
     Active Substance: ALPELISIB
     Indication: OVARIAN CANCER
     Route: 048
     Dates: start: 20200424, end: 20200530

REACTIONS (1)
  - Death [None]

NARRATIVE: CASE EVENT DATE: 20200530
